FAERS Safety Report 6684166-9 (Version None)
Quarter: 2010Q2

REPORT INFORMATION
  Report Type: 
  Country: None (occurrence: None)
  Receive Date: 20100416
  Receipt Date: 20100408
  Transmission Date: 20101027
  Serious: Yes (Hospitalization, Other)
  Sender: FDA-Public Use
  Company Number: US-ABBOTT-10P-163-0637475-00

PATIENT
  Sex: Male
  Weight: 154.36 kg

DRUGS (1)
  1. HUMIRA [Suspect]
     Indication: PSORIASIS
     Dates: start: 20090501, end: 20100201

REACTIONS (6)
  - B-CELL LYMPHOMA [None]
  - HAEMATEMESIS [None]
  - OROPHARYNGEAL PAIN [None]
  - PERITONSILLAR ABSCESS [None]
  - PHARYNGEAL HAEMORRHAGE [None]
  - TONSILLAR INFLAMMATION [None]
